FAERS Safety Report 13225440 (Version 1)
Quarter: 2017Q1

REPORT INFORMATION
  Report Type: Spontaneous
  Country: US (occurrence: US)
  Receive Date: 20170211
  Receipt Date: 20170211
  Transmission Date: 20170428
  Serious: No
  Sender: FDA-Public Use
  Company Number: None

PATIENT
  Age: 48 Year
  Sex: Female

DRUGS (1)
  1. CAPECITABINE 500MG ACCORD [Suspect]
     Active Substance: CAPECITABINE
     Indication: COLON CANCER
     Dosage: FREQUENCY - DAILY FOR 14 DAYS ON 7 DAYS
     Route: 048
     Dates: start: 20170127

REACTIONS (1)
  - Palmar-plantar erythrodysaesthesia syndrome [None]

NARRATIVE: CASE EVENT DATE: 20170208
